FAERS Safety Report 21968299 (Version 1)
Quarter: 2023Q1

REPORT INFORMATION
  Report Type: Spontaneous
  Country: IL (occurrence: IL)
  Receive Date: 20230208
  Receipt Date: 20230208
  Transmission Date: 20230417
  Serious: Yes (Other)
  Sender: FDA-Public Use
  Company Number: IL-002147023-NVSC2022IL264996

PATIENT
  Age: 53 Year
  Sex: Female

DRUGS (2)
  1. ILARIS [Suspect]
     Active Substance: CANAKINUMAB
     Indication: Familial mediterranean fever
     Dosage: UNK
     Route: 065
     Dates: start: 202206
  2. ILARIS [Suspect]
     Active Substance: CANAKINUMAB
     Dosage: UNK, 29 SEP
     Route: 065

REACTIONS (16)
  - Spinal cord disorder [Unknown]
  - Apnoea [Unknown]
  - Upper respiratory tract inflammation [Unknown]
  - Ear inflammation [Unknown]
  - Gingival pain [Unknown]
  - Condition aggravated [Unknown]
  - Hypoacusis [Unknown]
  - Toothache [Unknown]
  - Tinnitus [Unknown]
  - Arthritis [Unknown]
  - Abdominal pain [Unknown]
  - Bronchitis [Recovered/Resolved]
  - Cough [Unknown]
  - Oropharyngeal discomfort [Unknown]
  - Hypersensitivity [Unknown]
  - Nervous system injury [Unknown]
